FAERS Safety Report 5893776-8 (Version None)
Quarter: 2008Q3

REPORT INFORMATION
  Report Type: 
  Country: None (occurrence: None)
  Receive Date: 20080923
  Receipt Date: 20080908
  Transmission Date: 20090109
  Serious: Yes (Death, Disabling)
  Sender: FDA-Public Use
  Company Number: JP-GENENTECH-267096

PATIENT
  Sex: Male

DRUGS (4)
  1. AVASTIN [Suspect]
     Indication: COLON CANCER
     Dosage: 5 MG/KG, Q2W
     Route: 041
     Dates: start: 20080529, end: 20080807
  2. IRINOTECAN HCL [Concomitant]
     Indication: COLON CANCER
     Dosage: UNK
     Dates: start: 20080515, end: 20080807
  3. FLUOROURACIL [Concomitant]
     Indication: COLON CANCER
     Dosage: UNK
     Dates: start: 20080515, end: 20080807
  4. LEUCOVORIN CALCIUM [Concomitant]
     Indication: COLON CANCER
     Dosage: UNK
     Dates: start: 20080515, end: 20080807

REACTIONS (5)
  - DISSEMINATED INTRAVASCULAR COAGULATION [None]
  - MULTI-ORGAN FAILURE [None]
  - PNEUMONIA ASPIRATION [None]
  - PUTAMEN HAEMORRHAGE [None]
  - WHITE BLOOD CELL COUNT DECREASED [None]
